FAERS Safety Report 4924848-X (Version None)
Quarter: 2006Q1

REPORT INFORMATION
  Report Type: 
  Country: None (occurrence: None)
  Receive Date: 20060227
  Receipt Date: 20060220
  Transmission Date: 20060701
  Serious: Yes (Hospitalization, Other)
  Sender: FDA-Public Use
  Company Number: US-MERCK-0602USA05092

PATIENT
  Age: 49 Year
  Sex: Male
  Weight: 130 kg

DRUGS (1)
  1. VIOXX [Suspect]
     Indication: BACK PAIN
     Route: 048
     Dates: start: 20010128, end: 20040101

REACTIONS (5)
  - ARRHYTHMIA [None]
  - BACK DISORDER [None]
  - CARDIAC DISORDER [None]
  - CHEST PAIN [None]
  - LUNG DISORDER [None]
